FAERS Safety Report 7050642-2 (Version None)
Quarter: 2010Q4

REPORT INFORMATION
  Report Type: 
  Country: None (occurrence: None)
  Receive Date: 20101018
  Receipt Date: 20101014
  Transmission Date: 20110411
  Serious: Yes (Disabling)
  Sender: FDA-Public Use
  Company Number: DE-MERCK-1008DEU00085

PATIENT
  Age: 23 Year
  Sex: Male

DRUGS (1)
  1. PROPECIA [Suspect]
     Indication: ALOPECIA
     Route: 048
     Dates: start: 20030101, end: 20030101

REACTIONS (6)
  - ADVERSE EVENT [None]
  - ENDOCRINE DISORDER [None]
  - ERECTILE DYSFUNCTION [None]
  - HYPOAESTHESIA [None]
  - LOSS OF LIBIDO [None]
  - SEMEN VOLUME DECREASED [None]
